FAERS Safety Report 5356630-6 (Version None)
Quarter: 2007Q2

REPORT INFORMATION
  Report Type: 
  Country: None (occurrence: None)
  Receive Date: 20070614
  Receipt Date: 20070604
  Transmission Date: 20071010
  Serious: Yes (Other)
  Sender: FDA-Public Use
  Company Number: FR-JNJFOC-20070505537

PATIENT
  Sex: Male

DRUGS (3)
  1. REMICADE [Suspect]
     Route: 042
  2. REMICADE [Suspect]
     Indication: CROHN'S DISEASE
     Dosage: 4-5 INFUSIONS ON UNKNOWN DATES
     Route: 042
  3. AZATHIOPRINE SODIUM [Suspect]
     Indication: DRUG USE FOR UNKNOWN INDICATION
     Dosage: STARTED BETWEEEN YEAR 2000 AND 2005

REACTIONS (4)
  - CROHN'S DISEASE [None]
  - DYSAESTHESIA [None]
  - HEPATITIS [None]
  - PARAESTHESIA [None]
